FAERS Safety Report 20787661 (Version 1)
Quarter: 2022Q2

REPORT INFORMATION
  Report Type: Spontaneous
  Country: CN (occurrence: None)
  Receive Date: 20220505
  Receipt Date: 20220505
  Transmission Date: 20220720
  Serious: Yes (Other)
  Sender: FDA-Public Use
  Company Number: 2022A168377

PATIENT

DRUGS (3)
  1. OLAPARIB [Suspect]
     Active Substance: OLAPARIB
     Route: 048
     Dates: start: 20220218
  2. ABIRATERONE [Suspect]
     Active Substance: ABIRATERONE
     Dosage: 1000MG QI
     Route: 065
     Dates: start: 20220218
  3. PREDNISONE [Suspect]
     Active Substance: PREDNISONE
     Route: 065
     Dates: start: 20220218

REACTIONS (1)
  - Interstitial lung disease [Unknown]
